FAERS Safety Report 10356898 (Version 1)
Quarter: 2014Q3

REPORT INFORMATION
  Report Type: Spontaneous
  Country: US (occurrence: US)
  Receive Date: 20140801
  Receipt Date: 20140801
  Transmission Date: 20150326
  Serious: Yes (Other)
  Sender: FDA-Public Use
  Company Number: US-JNJFOC-20140714619

PATIENT
  Sex: Female
  Weight: 46.27 kg

DRUGS (5)
  1. DURAGESIC [Suspect]
     Active Substance: FENTANYL
     Indication: SPINAL FRACTURE
     Route: 062
     Dates: start: 2013
  2. DOXYCYCLINE. [Suspect]
     Active Substance: DOXYCYCLINE
     Indication: SKIN INFECTION
     Route: 048
  3. VENTOLIN [Concomitant]
     Active Substance: ALBUTEROL SULFATE
     Indication: ASTHMA
     Route: 055
  4. DURAGESIC [Suspect]
     Active Substance: FENTANYL
     Indication: RIB FRACTURE
     Route: 062
     Dates: start: 2013
  5. CARTIA XT [Concomitant]
     Active Substance: DILTIAZEM HYDROCHLORIDE
     Indication: CARDIAC DISORDER
     Route: 048
     Dates: start: 1992

REACTIONS (9)
  - Bedridden [Not Recovered/Not Resolved]
  - Malaise [Not Recovered/Not Resolved]
  - Skin infection [Not Recovered/Not Resolved]
  - Nausea [Not Recovered/Not Resolved]
  - Product quality issue [Unknown]
  - Dermatitis allergic [Not Recovered/Not Resolved]
  - Drug ineffective [Not Recovered/Not Resolved]
  - Dizziness [Not Recovered/Not Resolved]
  - Inappropriate schedule of drug administration [Not Recovered/Not Resolved]

NARRATIVE: CASE EVENT DATE: 2013
